FAERS Safety Report 17932277 (Version 2)
Quarter: 2020Q3

REPORT INFORMATION
  Report Type: Spontaneous
  Country: US (occurrence: US)
  Receive Date: 20200623
  Receipt Date: 20200708
  Transmission Date: 20201103
  Serious: Yes (Hospitalization, Other)
  Sender: FDA-Public Use
  Company Number: US-GLAXOSMITHKLINE-US2020GSK101182

PATIENT
  Age: 70 Year
  Sex: Female
  Weight: 74.84 kg

DRUGS (24)
  1. AMLODIPINE [Interacting]
     Active Substance: AMLODIPINE BESYLATE
     Indication: HYPERTENSION
     Dosage: 10 MG
     Route: 048
  2. ASPIRIN. [Concomitant]
     Active Substance: ASPIRIN
     Indication: CORONARY ARTERY DISEASE
     Dosage: 81 MG
     Route: 048
  3. RISPERIDONE. [Interacting]
     Active Substance: RISPERIDONE
     Indication: SCHIZOAFFECTIVE DISORDER BIPOLAR TYPE
     Dosage: 1.5 MG
  4. ACETAMINOPHEN. [Concomitant]
     Active Substance: ACETAMINOPHEN
     Indication: PRODUCT USED FOR UNKNOWN INDICATION
     Dosage: 650 MG, QID, PRN
     Route: 048
  5. DOCUSATE [Concomitant]
     Active Substance: DOCUSATE
     Indication: PRODUCT USED FOR UNKNOWN INDICATION
     Dosage: 200?MG DAILY
     Route: 048
  6. LORAZEPAM. [Interacting]
     Active Substance: LORAZEPAM
     Indication: PRODUCT USED FOR UNKNOWN INDICATION
     Dosage: 1 MG, TID
     Route: 048
     Dates: start: 20190128
  7. CARVEDILOL. [Suspect]
     Active Substance: CARVEDILOL
     Indication: HYPERTENSION
     Dosage: 25 MG, BID
     Route: 048
     Dates: end: 201902
  8. CLOZAPINE. [Interacting]
     Active Substance: CLOZAPINE
     Dosage: 50 MG, BID
     Route: 048
  9. ZIPRASIDONE. [Interacting]
     Active Substance: ZIPRASIDONE
     Indication: SCHIZOAFFECTIVE DISORDER BIPOLAR TYPE
     Dosage: 40 MG, BID
     Dates: end: 201902
  10. HYDRALAZINE [Interacting]
     Active Substance: HYDRALAZINE HYDROCHLORIDE
     Indication: HYPERTENSION
     Dosage: 100 MG, TID
     Route: 048
  11. ATORVASTATIN [Concomitant]
     Active Substance: ATORVASTATIN
     Indication: CORONARY ARTERY DISEASE
     Dosage: 40 MG
     Route: 048
  12. BRIMONIDINE [Concomitant]
     Active Substance: BRIMONIDINE TARTRATE
     Indication: GLAUCOMA
     Dosage: UNK
     Route: 050
  13. DONEPEZIL. [Concomitant]
     Active Substance: DONEPEZIL
     Indication: VASCULAR DEMENTIA
     Dosage: 10 MG
     Route: 048
  14. CLOZAPINE. [Interacting]
     Active Substance: CLOZAPINE
     Indication: SCHIZOAFFECTIVE DISORDER BIPOLAR TYPE
     Dosage: 12.5 MG, BID
     Dates: start: 201902, end: 201902
  15. OLANZAPINE. [Interacting]
     Active Substance: OLANZAPINE
     Dosage: TITRATED TO 20?MG DAILY
  16. TRAZODONE [Interacting]
     Active Substance: TRAZODONE HYDROCHLORIDE
     Indication: SLEEP DISORDER THERAPY
     Dosage: 100?MG PRN HS
     Route: 048
  17. FERROUS SULFATE. [Concomitant]
     Active Substance: FERROUS SULFATE
     Indication: PRODUCT USED FOR UNKNOWN INDICATION
     Dosage: 650 MG, TID
     Route: 048
  18. ZIPRASIDONE. [Interacting]
     Active Substance: ZIPRASIDONE
     Dosage: 100 MG
     Route: 048
  19. CLONIDINE TRANSDERMAL SYSTEM [Interacting]
     Active Substance: CLONIDINE
     Indication: HYPERTENSION
     Dosage: 0.3 MG, PER 24?H
     Route: 062
  20. CLOZAPINE. [Interacting]
     Active Substance: CLOZAPINE
     Dosage: 25 MG, BID
  21. RISPERIDONE. [Interacting]
     Active Substance: RISPERIDONE
     Dosage: TITRATED TO 4?MG DAILY
  22. DIVALPROEX SODIUM ER [Interacting]
     Active Substance: DIVALPROEX SODIUM
     Indication: SCHIZOAFFECTIVE DISORDER BIPOLAR TYPE
     Dosage: 1250 MG, QD (NIGHTLY)
     Route: 048
  23. ISOSORBIDE DINITRATE. [Concomitant]
     Active Substance: ISOSORBIDE DINITRATE
     Indication: CARDIAC FAILURE CHRONIC
     Dosage: 60 MG, BID
     Route: 048
  24. OLANZAPINE. [Interacting]
     Active Substance: OLANZAPINE
     Indication: SCHIZOAFFECTIVE DISORDER BIPOLAR TYPE
     Dosage: 5 MG DAILY

REACTIONS (27)
  - Heart rate decreased [Recovered/Resolved]
  - Peripheral coldness [Recovered/Resolved]
  - Blood albumin decreased [Recovered/Resolved]
  - Ejection fraction decreased [Recovered/Resolved]
  - Sinus arrhythmia [Recovered/Resolved]
  - Aortic valve incompetence [Unknown]
  - Hypoxia [Recovered/Resolved]
  - Hypotension [Recovered/Resolved]
  - Haematocrit decreased [Recovered/Resolved]
  - Chronic kidney disease [Unknown]
  - Hypercapnia [Recovered/Resolved]
  - Sinus bradycardia [Recovered/Resolved]
  - Bradycardia [Recovered/Resolved]
  - Platelet count decreased [Recovered/Resolved]
  - Somnolence [Recovered/Resolved]
  - Confusional state [Recovered/Resolved]
  - Drug interaction [Unknown]
  - Hypothermia [Recovered/Resolved]
  - Tachypnoea [Recovered/Resolved]
  - Blood creatinine increased [Not Recovered/Not Resolved]
  - Blood urea increased [Not Recovered/Not Resolved]
  - Acid base balance abnormal [Unknown]
  - Feeling cold [Recovered/Resolved]
  - Procalcitonin increased [Recovered/Resolved]
  - Electrocardiogram QT prolonged [Recovered/Resolved]
  - Blood pressure fluctuation [Recovered/Resolved]
  - pH body fluid abnormal [Unknown]

NARRATIVE: CASE EVENT DATE: 201902
